FAERS Safety Report 22629732 (Version 1)
Quarter: 2023Q2

REPORT INFORMATION
  Report Type: Spontaneous
  Country: ES (occurrence: ES)
  Receive Date: 20230622
  Receipt Date: 20230622
  Transmission Date: 20230721
  Serious: Yes (Other)
  Sender: FDA-Public Use
  Company Number: ES-JAZZ PHARMACEUTICALS-2023-ES-012035

PATIENT
  Age: 66 Year
  Sex: Female

DRUGS (1)
  1. ZEPZELCA [Suspect]
     Active Substance: LURBINECTEDIN
     Indication: Product used for unknown indication
     Dosage: X34 CYCLES
     Dates: start: 201705

REACTIONS (2)
  - Myelosuppression [Unknown]
  - Asthenia [Unknown]
